FAERS Safety Report 5220922-1 (Version None)
Quarter: 2007Q1

REPORT INFORMATION
  Report Type: 
  Country: None (occurrence: None)
  Receive Date: 20070125
  Receipt Date: 20070125
  Transmission Date: 20070707
  Serious: Yes (Hospitalization)
  Sender: FDA-Public Use
  Company Number: None

PATIENT
  Sex: Male

DRUGS (3)
  1. PEG-INTRON [Suspect]
     Indication: HEPATITIS
     Dosage: PRIOR TO ADMISSION
  2. RIBAVIRIN [Concomitant]
  3. DARVON [Concomitant]

REACTIONS (2)
  - ANAEMIA [None]
  - FATIGUE [None]
